FAERS Safety Report 13129307 (Version 1)
Quarter: 2017Q1

REPORT INFORMATION
  Report Type: Report from Study
  Country: JP (occurrence: JP)
  Receive Date: 20170119
  Receipt Date: 20170119
  Transmission Date: 20170428
  Serious: Yes (Other)
  Sender: FDA-Public Use
  Company Number: JP-ROCHE-1074662

PATIENT

DRUGS (1)
  1. CAPECITABINE. [Suspect]
     Active Substance: CAPECITABINE
     Indication: COLORECTAL CANCER
     Dosage: PER DAY FOR 14 DAYS FOLLOWED BY 7 DAYS REST
     Route: 048

REACTIONS (18)
  - Alanine aminotransferase abnormal [Unknown]
  - Leukopenia [Unknown]
  - Lymphopenia [Unknown]
  - Alopecia [Unknown]
  - Vomiting [Unknown]
  - Rash [Unknown]
  - Stomatitis [Unknown]
  - Hyperbilirubinaemia [Unknown]
  - Decreased appetite [Unknown]
  - Fatigue [Unknown]
  - Nausea [Unknown]
  - Aspartate aminotransferase abnormal [Unknown]
  - Platelet count abnormal [Unknown]
  - Diarrhoea [Unknown]
  - Neutropenia [Unknown]
  - Palmar-plantar erythrodysaesthesia syndrome [Unknown]
  - Skin hyperpigmentation [Unknown]
  - Haemoglobin abnormal [Unknown]
